FAERS Safety Report 11797218 (Version 2)
Quarter: 2015Q4

REPORT INFORMATION
  Report Type: Spontaneous
  Country: US (occurrence: US)
  Receive Date: 20151203
  Receipt Date: 20151210
  Transmission Date: 20160305
  Serious: No
  Sender: FDA-Public Use
  Company Number: US-009507513-1511USA013604

PATIENT
  Age: 83 Year
  Sex: Female
  Weight: 70.75 kg

DRUGS (5)
  1. SYNTHROID [Concomitant]
     Active Substance: LEVOTHYROXINE SODIUM
  2. AVAPRO [Concomitant]
     Active Substance: IRBESARTAN
  3. PAROXETINE [Concomitant]
     Active Substance: PAROXETINE\PAROXETINE HYDROCHLORIDE
  4. TRAMADOL HYDROCHLORIDE. [Concomitant]
     Active Substance: TRAMADOL HYDROCHLORIDE
     Dosage: PM, PER H, TID
     Route: 048
  5. BELSOMRA [Suspect]
     Active Substance: SUVOREXANT
     Indication: INSOMNIA
     Dosage: 10 MG/ONE AT NIGHT
     Route: 048
     Dates: start: 20151111, end: 20151112

REACTIONS (2)
  - Somnolence [Recovered/Resolved]
  - Drug effect prolonged [Recovered/Resolved]

NARRATIVE: CASE EVENT DATE: 20151112
